FAERS Safety Report 8121291-X (Version None)
Quarter: 2012Q1

REPORT INFORMATION
  Report Type: 
  Country: None (occurrence: None)
  Receive Date: 20120208
  Receipt Date: 20120201
  Transmission Date: 20120608
  Serious: Yes (Hospitalization, Other)
  Sender: FDA-Public Use
  Company Number: CA-CELGENEUS-028-21880-12020130

PATIENT
  Sex: Male

DRUGS (11)
  1. VITAMIN D [Concomitant]
     Dosage: 1000
     Route: 065
  2. GLIPIZIDE [Concomitant]
     Route: 065
  3. VITAMIN E [Concomitant]
     Route: 065
  4. REVLIMID [Suspect]
     Dosage: 10 MILLIGRAM
     Route: 048
  5. GABAPENTIN [Concomitant]
     Route: 065
  6. ADALAT [Concomitant]
     Route: 065
  7. VITAMIN B-12 [Concomitant]
     Route: 065
  8. HYDROCHLOROTHIAZIDE [Concomitant]
     Route: 065
  9. ASPIRIN [Concomitant]
     Dosage: 80 MILLIGRAM
     Route: 065
  10. ATENOLOL [Concomitant]
     Route: 065
  11. DEXAMETHASONE [Concomitant]
     Dosage: 8 MILLIGRAM
     Route: 065

REACTIONS (2)
  - GALLBLADDER DISORDER [None]
  - INCISION SITE INFECTION [None]
